FAERS Safety Report 18292017 (Version 1)
Quarter: 2020Q3

REPORT INFORMATION
  Report Type: Spontaneous
  Country: CN (occurrence: CN)
  Receive Date: 20200921
  Receipt Date: 20200921
  Transmission Date: 20201103
  Serious: Yes (Other)
  Sender: FDA-Public Use
  Company Number: CN-FRESENIUS KABI-FK202009626

PATIENT
  Age: 4 Year
  Sex: Female

DRUGS (9)
  1. METHYLPREDNISOLONE (MANUFACTURER UNKNOWN) [Suspect]
     Active Substance: METHYLPREDNISOLONE
     Indication: INFLAMMATION
     Route: 065
  2. AZITHROMYCIN (MANUFACTURER UNKNOWN) [Suspect]
     Active Substance: AZITHROMYCIN ANHYDROUS
     Indication: TONSILLITIS
     Route: 042
  3. METHYLPREDNISOLONE (MANUFACTURER UNKNOWN) [Suspect]
     Active Substance: METHYLPREDNISOLONE
     Indication: VANISHING BILE DUCT SYNDROME
  4. METHYLPREDNISOLONE (MANUFACTURER UNKNOWN) [Suspect]
     Active Substance: METHYLPREDNISOLONE
     Dosage: DOSE REDUCED GRADUALLY
     Route: 065
  5. METHYLPREDNISOLONE (MANUFACTURER UNKNOWN) [Suspect]
     Active Substance: METHYLPREDNISOLONE
     Dosage: AFTER DISCHARGE FROM HOSPITAL, DOSE REDUCED CONTINUOUSLY
     Route: 065
  6. HOUTTUYNIA CORDATA [Suspect]
     Active Substance: HERBALS\HOUTTUYNIA CORDATA WHOLE
     Indication: TONSILLITIS
     Route: 065
  7. IBUPROFEN. [Suspect]
     Active Substance: IBUPROFEN
     Indication: TONSILLITIS
     Route: 065
  8. CEFIXIME. [Suspect]
     Active Substance: CEFIXIME
     Indication: TONSILLITIS
     Route: 048
  9. GLYCINE MAX FERMENTED SEED/RHEUM PALMATUM ROOT WITH RHIZOME/MAGNOLIA OFFICINALIS BARK/BUPLEURUM CHIN [Suspect]
     Active Substance: HERBALS
     Indication: TONSILLITIS
     Route: 065

REACTIONS (2)
  - Condition aggravated [Unknown]
  - Vanishing bile duct syndrome [Unknown]
